FAERS Safety Report 9197635 (Version 2)
Quarter: 2013Q2

REPORT INFORMATION
  Report Type: Spontaneous
  Country: GB (occurrence: GB)
  Receive Date: 20130328
  Receipt Date: 20130418
  Transmission Date: 20140414
  Serious: Yes (Congenital Anomaly)
  Sender: FDA-Public Use
  Company Number: GB-UCBSA-081613

PATIENT
  Sex: 0

DRUGS (2)
  1. KEPPRA [Suspect]
     Indication: EPILEPSY
     Route: 064
  2. FOLIC ACID [Concomitant]
     Route: 064

REACTIONS (2)
  - Ankyloglossia congenital [Unknown]
  - Foetal exposure during pregnancy [Recovered/Resolved]
